FAERS Safety Report 17127756 (Version 1)
Quarter: 2019Q4

REPORT INFORMATION
  Report Type: Spontaneous
  Country: GB (occurrence: GB)
  Receive Date: 20191209
  Receipt Date: 20191209
  Transmission Date: 20200122
  Serious: Yes (Death, Life-Threatening, Hospitalization, Other)
  Sender: FDA-Public Use
  Company Number: GB-TORRENT-00021350

PATIENT
  Age: 81 Year
  Sex: Female
  Weight: 45 kg

DRUGS (13)
  1. CLOPIDOGREL [Suspect]
     Active Substance: CLOPIDOGREL BISULFATE
     Indication: TRANSIENT ISCHAEMIC ATTACK
     Dosage: 14 DAY COURSE
     Route: 048
     Dates: start: 20190525
  2. ATORVASTATIN [Concomitant]
     Active Substance: ATORVASTATIN
     Indication: TRANSIENT ISCHAEMIC ATTACK
     Route: 048
     Dates: start: 201811
  3. DIGOXIN. [Concomitant]
     Active Substance: DIGOXIN
     Indication: ATRIAL FIBRILLATION
     Route: 048
     Dates: start: 201906
  4. OMEPRAZOLE. [Concomitant]
     Active Substance: OMEPRAZOLE
     Indication: DYSPEPSIA
     Route: 048
     Dates: start: 201903
  5. PARACETAMOL [Concomitant]
     Active Substance: ACETAMINOPHEN
     Indication: PAIN
     Route: 048
     Dates: start: 201902, end: 201903
  6. HYDROMOL [Concomitant]
     Indication: DERMATITIS
     Route: 061
     Dates: start: 201902, end: 201903
  7. ZOPICLONE [Concomitant]
     Active Substance: ZOPICLONE
     Indication: INSOMNIA
     Dosage: AT NIGHT
     Route: 048
     Dates: start: 201903
  8. BRALTUS [Concomitant]
     Active Substance: TIOTROPIUM BROMIDE
     Indication: CHRONIC OBSTRUCTIVE PULMONARY DISEASE
     Dates: start: 201903
  9. APIXABAN [Suspect]
     Active Substance: APIXABAN
     Indication: TRANSIENT ISCHAEMIC ATTACK
     Route: 048
     Dates: start: 20190524
  10. CARVEDILOL. [Concomitant]
     Active Substance: CARVEDILOL
     Indication: CARDIAC PACEMAKER INSERTION
     Route: 048
     Dates: start: 201811
  11. ADCAL-D3 [Concomitant]
     Active Substance: CALCIUM CARBONATE\CHOLECALCIFEROL
     Indication: SPINAL COMPRESSION FRACTURE
     Dosage: TT DAILY
     Route: 048
     Dates: start: 201906
  12. ALENDRONIC ACID [Concomitant]
     Active Substance: ALENDRONIC ACID
     Indication: SPINAL COMPRESSION FRACTURE
     Route: 048
     Dates: start: 201906
  13. DUORESP SPIROMAX [Concomitant]
     Active Substance: BUDESONIDE\FORMOTEROL
     Indication: CHRONIC OBSTRUCTIVE PULMONARY DISEASE
     Dosage: 320/9
     Route: 055
     Dates: start: 201903

REACTIONS (7)
  - Haemorrhage intracranial [Fatal]
  - Brain oedema [Unknown]
  - Basal ganglia haemorrhage [Fatal]
  - Hydrocephalus [Unknown]
  - Intracranial pressure increased [Unknown]
  - Cerebral ventricle dilatation [Unknown]
  - Hypoaesthesia [Unknown]

NARRATIVE: CASE EVENT DATE: 20190610
